FAERS Safety Report 18747320 (Version 1)
Quarter: 2021Q1

REPORT INFORMATION
  Report Type: Spontaneous
  Country: US (occurrence: US)
  Receive Date: 20210115
  Receipt Date: 20210115
  Transmission Date: 20210419
  Serious: No
  Sender: FDA-Public Use
  Company Number: US-ROCHE-2685303

PATIENT
  Age: 61 Year
  Sex: Female
  Weight: 76 kg

DRUGS (2)
  1. PHESGO [Suspect]
     Active Substance: HYALURONIDASE-ZZXF\PERTUZUMAB\TRASTUZUMAB
     Indication: HER2 POSITIVE BREAST CANCER
     Dosage: LOADING DOSE; ONGOING: YES
     Route: 058
     Dates: start: 20200903
  2. PHESGO [Suspect]
     Active Substance: HYALURONIDASE-ZZXF\PERTUZUMAB\TRASTUZUMAB
     Indication: BREAST CANCER
     Dosage: LOADING DOSE; ONGOING: YES
     Route: 058
     Dates: start: 20200903

REACTIONS (2)
  - Product administered at inappropriate site [Unknown]
  - No adverse event [Unknown]

NARRATIVE: CASE EVENT DATE: 20200903
